FAERS Safety Report 9085541 (Version 1)
Quarter: 2013Q1

REPORT INFORMATION
  Report Type: Report from Study
  Country: US (occurrence: US)
  Receive Date: 20130131
  Receipt Date: 20130131
  Transmission Date: 20140127
  Serious: No
  Sender: FDA-Public Use
  Company Number: US-ABBOTT-12P-163-0986382-00

PATIENT
  Age: 40 Year
  Sex: Female
  Weight: 118.04 kg

DRUGS (2)
  1. HUMIRA [Suspect]
     Indication: PSORIASIS
     Dates: start: 201208
  2. UNNAMED ANTIHISTAMINE [Concomitant]
     Indication: SINUS DISORDER

REACTIONS (7)
  - Mood altered [Not Recovered/Not Resolved]
  - Personality change [Not Recovered/Not Resolved]
  - Personality change [Not Recovered/Not Resolved]
  - Unevaluable event [Not Recovered/Not Resolved]
  - Mental disorder [Not Recovered/Not Resolved]
  - Social avoidant behaviour [Not Recovered/Not Resolved]
  - Fear [Not Recovered/Not Resolved]
